FAERS Safety Report 16203171 (Version 4)
Quarter: 2019Q3

REPORT INFORMATION
  Report Type: Report from Study
  Country: US (occurrence: US)
  Receive Date: 20190416
  Receipt Date: 20190704
  Transmission Date: 20191004
  Serious: Yes (Hospitalization, Other)
  Sender: FDA-Public Use
  Company Number: US-PFIZER INC-2019154378

PATIENT
  Age: 18 Year
  Weight: 99.1 kg

DRUGS (18)
  1. CYTARABINE. [Suspect]
     Active Substance: CYTARABINE
     Dosage: 157X4 MG, IV PUSH, 1X/DAY
     Route: 042
     Dates: start: 20190225
  2. PEGASPARGASE [Suspect]
     Active Substance: PEGASPARGASE
     Indication: B PRECURSOR TYPE ACUTE LEUKAEMIA
     Dosage: 5375 IU, ONCE
     Route: 042
     Dates: start: 20190304, end: 20190304
  3. METHOTREXATE SODIUM. [Suspect]
     Active Substance: METHOTREXATE SODIUM
     Indication: B PRECURSOR TYPE ACUTE LEUKAEMIA
     Dosage: 15 MG, ONE DOSE
     Route: 037
     Dates: start: 20190219, end: 20190219
  4. METHOTREXATE SODIUM. [Suspect]
     Active Substance: METHOTREXATE SODIUM
     Dosage: 15 MG, ONE DOSE
     Route: 037
     Dates: start: 20190226, end: 20190226
  5. MERCAPTOPURINE. [Suspect]
     Active Substance: MERCAPTOPURINE
     Indication: B PRECURSOR TYPE ACUTE LEUKAEMIA
     Dosage: 75MG X14 DAILY
     Route: 048
     Dates: start: 20190218
  6. VINCRISTINE SULFATE. [Suspect]
     Active Substance: VINCRISTINE SULFATE
     Dosage: 2 MG, ONCE
     Route: 042
     Dates: start: 20190311, end: 20190311
  7. ACETAMINOPHEN. [Concomitant]
     Active Substance: ACETAMINOPHEN
     Dosage: UNK
     Dates: start: 20190316
  8. CYTARABINE. [Suspect]
     Active Substance: CYTARABINE
     Indication: B PRECURSOR TYPE ACUTE LEUKAEMIA
     Dosage: 157X4 MG, IV PUSH, 1X/DAY
     Route: 042
     Dates: start: 20190218, end: 20190221
  9. METHOTREXATE SODIUM. [Suspect]
     Active Substance: METHOTREXATE SODIUM
     Dosage: 15 MG, ONE DOSE
     Route: 037
     Dates: start: 20190305, end: 20190305
  10. INCB018424 [Suspect]
     Active Substance: RUXOLITINIB
     Dosage: 105 MG, 2X/DAY
     Route: 048
     Dates: start: 20190325
  11. VINCRISTINE SULFATE. [Suspect]
     Active Substance: VINCRISTINE SULFATE
     Indication: B PRECURSOR TYPE ACUTE LEUKAEMIA
     Dosage: 2 MG, ONCE
     Route: 042
     Dates: start: 20190304, end: 20190304
  12. MOTRIN [Concomitant]
     Active Substance: IBUPROFEN
     Dosage: UNK
     Dates: start: 20190316
  13. GAS-X [Concomitant]
     Active Substance: DIMETHICONE
     Dosage: UNK
     Dates: start: 20190317, end: 20190317
  14. METHOTREXATE SODIUM. [Suspect]
     Active Substance: METHOTREXATE SODIUM
     Dosage: 15 MG, ONE DOSE
     Route: 037
     Dates: start: 20190312, end: 20190312
  15. CYCLOPHOSPHAMIDE. [Suspect]
     Active Substance: CYCLOPHOSPHAMIDE
     Indication: B PRECURSOR TYPE ACUTE LEUKAEMIA
     Dosage: 2090 MG, ONCE
     Route: 042
     Dates: start: 20190218, end: 20190218
  16. VINCRISTINE SULFATE. [Suspect]
     Active Substance: VINCRISTINE SULFATE
     Dosage: 2 MG, ONCE
     Route: 042
     Dates: start: 20190408
  17. PEGASPARGASE [Suspect]
     Active Substance: PEGASPARGASE
     Dosage: 5400 IU, OVER 2 HOURS
     Route: 042
     Dates: start: 20190408
  18. INCB018424 [Suspect]
     Active Substance: RUXOLITINIB
     Indication: B PRECURSOR TYPE ACUTE LEUKAEMIA
     Dosage: 105 MG, 1X/DAY
     Route: 048
     Dates: start: 20190219, end: 20190314

REACTIONS (6)
  - Platelet count decreased [Recovered/Resolved]
  - Febrile neutropenia [Recovered/Resolved]
  - Nausea [Recovering/Resolving]
  - Anaemia [Recovered/Resolved]
  - Rash [Recovered/Resolved]
  - Febrile neutropenia [Recovered/Resolved]

NARRATIVE: CASE EVENT DATE: 20190311
